FAERS Safety Report 7518596-X (Version None)
Quarter: 2011Q2

REPORT INFORMATION
  Report Type: 
  Country: None (occurrence: None)
  Receive Date: 20110523
  Receipt Date: 20110506
  Transmission Date: 20111010
  Serious: Yes (Hospitalization)
  Sender: FDA-Public Use
  Company Number: AUR-APL-2011-01600

PATIENT
  Age: 50 Year
  Sex: Female
  Weight: 93 kg

DRUGS (5)
  1. CARBAMAZEPINE [Suspect]
     Indication: RESTLESS LEGS SYNDROME
     Dosage: 100MG-DAILY-ORAL
     Route: 048
     Dates: start: 20101201, end: 20110228
  2. T-LONG (TRAMADOL) [Suspect]
     Indication: BACK PAIN
     Dosage: 100MG-DAILY-ORAL
     Route: 048
     Dates: start: 20060101, end: 20110304
  3. IBUPROFEN [Suspect]
     Indication: HEADACHE
     Dosage: 800MG-TWICE WEEKLY-ORAL
     Route: 048
     Dates: start: 20010101, end: 20110304
  4. LISINOPRIL [Suspect]
     Indication: HYPERTENSION
     Dosage: 5 MG - DAILY - ORAL
     Route: 048
     Dates: start: 20060101, end: 20110304
  5. FEMOSTON [Suspect]
     Indication: MENOPAUSE
     Dosage: 1 TABLET-DAILY-ORAL
     Route: 048
     Dates: start: 19990101, end: 20110304

REACTIONS (8)
  - PROTEIN TOTAL DECREASED [None]
  - ALANINE AMINOTRANSFERASE INCREASED [None]
  - AMMONIA INCREASED [None]
  - GAMMA-GLUTAMYLTRANSFERASE INCREASED [None]
  - PROTHROMBIN TIME PROLONGED [None]
  - LIVER DISORDER [None]
  - ASPARTATE AMINOTRANSFERASE INCREASED [None]
  - BLOOD BILIRUBIN INCREASED [None]
